FAERS Safety Report 8460944 (Version 2)
Quarter: 2013Q2

REPORT INFORMATION
  Report Type: Spontaneous
  Country: US (occurrence: US)
  Receive Date: 20120315
  Receipt Date: 20130516
  Transmission Date: 20140414
  Serious: Yes (Hospitalization)
  Sender: FDA-Public Use
  Company Number: US-BAXTER-2012BH006869

PATIENT
  Age: 75 Year
  Sex: Male

DRUGS (3)
  1. DIANEAL LOW CALCIUM [Suspect]
     Indication: PERITONEAL DIALYSIS
     Dosage: 10 L
     Route: 033
     Dates: start: 201111
  2. DIANEAL LOW CALCIUM (ULTRABAG) [Suspect]
     Indication: PERITONEAL DIALYSIS
     Dosage: 2.5 L
     Route: 033
     Dates: start: 201111
  3. OXYGEN [Concomitant]
     Indication: BRONCHITIS

REACTIONS (1)
  - Bronchitis [Recovering/Resolving]
